FAERS Safety Report 6231636-3 (Version None)
Quarter: 2009Q2

REPORT INFORMATION
  Report Type: 
  Country: None (occurrence: None)
  Receive Date: 20090616
  Receipt Date: 20090605
  Transmission Date: 20091009
  Serious: Yes (Other)
  Sender: FDA-Public Use
  Company Number: JP-WYE-H09522409

PATIENT
  Sex: Male
  Weight: 38 kg

DRUGS (11)
  1. MYLOTARG [Suspect]
     Indication: ACUTE MYELOID LEUKAEMIA
     Route: 041
     Dates: start: 20060911, end: 20060911
  2. MYLOTARG [Suspect]
     Route: 041
     Dates: start: 20061010, end: 20061010
  3. PARIET [Concomitant]
     Route: 048
     Dates: start: 20060907
  4. BAKTAR [Concomitant]
     Route: 048
     Dates: start: 20060907
  5. CLOSTRIDIUM BUTYRICUM [Concomitant]
     Route: 048
     Dates: start: 20060907
  6. DIFLUCAN [Concomitant]
     Route: 048
     Dates: start: 20060907
  7. ZYLORIC [Concomitant]
     Route: 048
     Dates: start: 20060907
  8. SAXIZON [Concomitant]
     Route: 041
     Dates: start: 20060911, end: 20061001
  9. NASEA [Concomitant]
     Route: 042
     Dates: start: 20060911, end: 20061010
  10. ALUMINIUM SILICATE [Concomitant]
     Route: 048
     Dates: start: 20060907
  11. EBASTEL [Concomitant]
     Route: 048
     Dates: start: 20060907

REACTIONS (1)
  - PLASMACYTOMA [None]
